FAERS Safety Report 5764879-3 (Version None)
Quarter: 2008Q2

REPORT INFORMATION
  Report Type: 
  Country: None (occurrence: None)
  Receive Date: 20080611
  Receipt Date: 20080604
  Transmission Date: 20081010
  Serious: Yes (Hospitalization)
  Sender: FDA-Public Use
  Company Number: GR-AVENTIS-200812625EU

PATIENT
  Age: 75 Year
  Sex: Male

DRUGS (1)
  1. CLEXANE [Suspect]
     Dosage: DOSE: UNK
     Route: 058
     Dates: start: 20080501

REACTIONS (1)
  - CHOLECYSTITIS ACUTE [None]
